FAERS Safety Report 8757619 (Version 3)
Quarter: 2013Q1

REPORT INFORMATION
  Report Type: Report from Study
  Country: MX (occurrence: MX)
  Receive Date: 20120828
  Receipt Date: 20130201
  Transmission Date: 20140127
  Serious: Yes (Other)
  Sender: FDA-Public Use
  Company Number: PHHY2012MX072918

PATIENT
  Age: 84 Year
  Sex: Male

DRUGS (11)
  1. ONBREZ [Suspect]
     Indication: ASTHMA
     Dosage: 150 UG, DAILY
     Route: 055
     Dates: start: 201111
  2. ONBREZ [Suspect]
     Indication: OFF LABEL USE
     Dosage: 300 UG, QD
     Route: 055
  3. SPIRIVA [Concomitant]
     Indication: CHRONIC OBSTRUCTIVE PULMONARY DISEASE
     Dates: start: 200701
  4. SPIRIVA [Concomitant]
     Indication: LUNG DISORDER
  5. COMBIVENT [Concomitant]
     Indication: LUNG DISORDER
     Dates: start: 200701
  6. OXYGEN [Concomitant]
  7. THEOPHYLLINE [Concomitant]
     Indication: LUNG DISORDER
     Dates: start: 201107
  8. ENALAPRIL [Concomitant]
     Indication: HYPERTENSION
     Dates: start: 200701
  9. ACETYLSALICYLIC ACID [Concomitant]
     Indication: CARDIAC DISORDER
     Dates: start: 200701
  10. TRAMACET [Concomitant]
     Indication: ARTHRALGIA
     Dates: start: 201207
  11. GABAPENTIN [Concomitant]
     Indication: PAIN
     Dosage: 1 UKN, QD
     Dates: start: 201107

REACTIONS (3)
  - Emphysema [Not Recovered/Not Resolved]
  - Asphyxia [Recovered/Resolved]
  - Drug ineffective [Recovered/Resolved]
